FAERS Safety Report 7998767-9 (Version None)
Quarter: 2011Q4

REPORT INFORMATION
  Report Type: 
  Country: None (occurrence: None)
  Receive Date: 20111221
  Receipt Date: 20111213
  Transmission Date: 20120403
  Serious: Yes (Life-Threatening)
  Sender: FDA-Public Use
  Company Number: BR-BAYER-2011-119464

PATIENT
  Sex: Female

DRUGS (2)
  1. YAZ (24) [Suspect]
     Route: 048
  2. YASMIN [Suspect]
     Route: 048

REACTIONS (1)
  - FEELING ABNORMAL [None]
